FAERS Safety Report 17516931 (Version 7)
Quarter: 2022Q4

REPORT INFORMATION
  Report Type: Report from Study
  Country: GB (occurrence: GB)
  Receive Date: 20200309
  Receipt Date: 20221020
  Transmission Date: 20230113
  Serious: Yes (Hospitalization, Other)
  Sender: FDA-Public Use
  Company Number: GB-ROCHE-1748037

PATIENT
  Age: 80 Year
  Sex: Female

DRUGS (23)
  1. LETROZOLE [Suspect]
     Active Substance: LETROZOLE
     Indication: Breast cancer metastatic
     Dosage: 2.5 MILLIGRAM, QD
     Route: 048
     Dates: start: 20151103
  2. LETROZOLE [Suspect]
     Active Substance: LETROZOLE
     Indication: HER2 positive breast cancer
  3. TRASTUZUMAB [Suspect]
     Active Substance: TRASTUZUMAB
     Indication: Breast cancer metastatic
     Dosage: 600 MILLIGRAM, Q3W
     Route: 058
     Dates: start: 20151223
  4. TRASTUZUMAB [Suspect]
     Active Substance: TRASTUZUMAB
     Indication: HER2 positive breast cancer
  5. HYALURONIDASE (HUMAN RECOMBINANT) [Suspect]
     Active Substance: HYALURONIDASE (HUMAN RECOMBINANT)
     Indication: HER2 positive breast cancer
     Dosage: 600 MILLIGRAM, Q3W 600 MG, TIW
     Route: 058
     Dates: start: 20151223
  6. TINZAPARIN [Concomitant]
     Active Substance: TINZAPARIN
     Indication: Product used for unknown indication
     Dosage: DOSE: 3500 UNITS
     Route: 058
     Dates: start: 20160302, end: 20160314
  7. FLUCLOXACILLIN [Concomitant]
     Active Substance: FLUCLOXACILLIN
     Indication: Cellulitis
     Dosage: 500 MILLIGRM, BID
     Route: 048
     Dates: start: 20160106
  8. FLUCLOXACILLIN [Concomitant]
     Active Substance: FLUCLOXACILLIN
     Dosage: 500 MILLIGRAM, QD
     Route: 048
     Dates: start: 20160106
  9. FLUCLOXACILLIN [Concomitant]
     Active Substance: FLUCLOXACILLIN
     Dosage: 500 MILLIGRAM, BID
     Route: 048
     Dates: start: 20160106
  10. FLUCLOXACILLIN [Concomitant]
     Active Substance: FLUCLOXACILLIN
     Dosage: 500 MILLIGRAM, QW
     Route: 048
     Dates: start: 20160205, end: 20160211
  11. RAMIPRIL [Concomitant]
     Active Substance: RAMIPRIL
     Indication: Product used for unknown indication
     Dosage: 5 MILLIGRAM
     Route: 048
  12. WARFARIN [Concomitant]
     Active Substance: WARFARIN
     Indication: Product used for unknown indication
     Dosage: 1 MILLIGRAM
     Route: 048
     Dates: end: 20160217
  13. SENNA LEAF [Concomitant]
     Active Substance: SENNA LEAF
     Dosage: UNK (DOSE: 3500 UNITS)
     Route: 058
     Dates: start: 20160302, end: 20160314
  14. BENDROFLUMETHIAZIDE [Concomitant]
     Active Substance: BENDROFLUMETHIAZIDE
     Indication: Product used for unknown indication
     Dosage: 2.5 MILLIGRAM
     Route: 048
  15. BENDROFLUMETHIAZIDE [Concomitant]
     Active Substance: BENDROFLUMETHIAZIDE
     Dosage: 2.5 MILLIGRAM
     Route: 048
  16. ATENOLOL [Concomitant]
     Active Substance: ATENOLOL
     Dosage: 100 MILLIGRAM
     Route: 054
  17. MORPHINE SULFATE [Concomitant]
     Active Substance: MORPHINE SULFATE
     Indication: Product used for unknown indication
     Dosage: UNK
     Route: 065
  18. ACETAMINOPHEN [Concomitant]
     Active Substance: ACETAMINOPHEN
     Indication: Analgesic therapy
     Dosage: 500 MILLIGRAM
     Route: 065
     Dates: start: 20160130, end: 20160308
  19. SODIUM CHLORIDE [Concomitant]
     Active Substance: SODIUM CHLORIDE
     Indication: Prophylaxis
     Dosage: 1000 MILLIGRAM, Q8H (PRN)
     Route: 065
     Dates: start: 20160130, end: 20160130
  20. CO-DYDRAMOL [Concomitant]
     Active Substance: ACETAMINOPHEN\DIHYDROCODEINE
     Indication: Prophylaxis
     Dosage: 10/500 MG (4 UNSPECIFIED UNIT)
     Route: 048
     Dates: start: 20160130, end: 20160204
  21. ZOLEDRONIC ACID [Concomitant]
     Active Substance: ZOLEDRONIC ACID
     Indication: Product used for unknown indication
     Dosage: 3.3 MILLIGRAM, Q3MONTHS
     Route: 042
     Dates: start: 20160203
  22. FUROSEMIDE [Concomitant]
     Active Substance: FUROSEMIDE
     Indication: Prophylaxis
     Dosage: 40 MILLIGRAM, QD
     Route: 048
     Dates: start: 20160208, end: 20160212
  23. ZOLEDRONIC ACID [Concomitant]
     Active Substance: ZOLEDRONIC ACID
     Dosage: 500 MILLIGRAM, QW
     Route: 048
     Dates: start: 20160205, end: 20160211

REACTIONS (20)
  - Hyperglycaemia [Recovered/Resolved]
  - Anaemia [Not Recovered/Not Resolved]
  - Vomiting [Recovered/Resolved]
  - Rectal haemorrhage [Recovered/Resolved]
  - Hypoglycaemia [Recovered/Resolved]
  - Cellulitis [Not Recovered/Not Resolved]
  - Confusional state [Recovered/Resolved]
  - Skin disorder [Not Recovered/Not Resolved]
  - Blood creatinine increased [Recovered/Resolved]
  - Agitation [Unknown]
  - Sepsis [Not Recovered/Not Resolved]
  - Diverticulum [Not Recovered/Not Resolved]
  - Oropharyngeal pain [Recovered/Resolved]
  - Acidosis [Recovered/Resolved]
  - Melaena [Recovered/Resolved]
  - International normalised ratio increased [Recovered/Resolved]
  - Pain [Not Recovered/Not Resolved]
  - Hypotension [Recovered/Resolved]
  - Constipation [Not Recovered/Not Resolved]
  - Cough [Recovered/Resolved]

NARRATIVE: CASE EVENT DATE: 20160119
